FAERS Safety Report 4922734-2 (Version None)
Quarter: 2006Q1

REPORT INFORMATION
  Report Type: 
  Country: None (occurrence: None)
  Receive Date: 20060224
  Receipt Date: 20050824
  Transmission Date: 20060701
  Serious: Yes (Hospitalization)
  Sender: FDA-Public Use
  Company Number: US-MERCK-0508USA04261

PATIENT
  Age: 64 Year
  Sex: Male
  Weight: 100 kg

DRUGS (10)
  1. VIOXX [Suspect]
     Indication: BACK PAIN
     Route: 048
     Dates: start: 19990101, end: 20040505
  2. VIOXX [Suspect]
     Route: 048
     Dates: start: 20010726, end: 20020523
  3. VIOXX [Suspect]
     Indication: ARTHRITIS
     Route: 048
     Dates: start: 19990101, end: 20040505
  4. VIOXX [Suspect]
     Route: 048
     Dates: start: 20010726, end: 20020523
  5. DARVOCET-N 50 [Concomitant]
     Route: 065
  6. ATENOLOL [Concomitant]
     Route: 065
  7. IMDUR [Concomitant]
     Route: 065
  8. ASPIRIN [Concomitant]
     Route: 065
  9. PLETAL [Concomitant]
     Route: 065
  10. ULTRAM [Concomitant]
     Route: 065

REACTIONS (12)
  - ACUTE CORONARY SYNDROME [None]
  - CAROTID ARTERY STENOSIS [None]
  - CHEST PAIN [None]
  - CORONARY ARTERY DISEASE [None]
  - CORONARY ARTERY RESTENOSIS [None]
  - CORONARY ARTERY STENOSIS [None]
  - DRUG INEFFECTIVE [None]
  - DYSPNOEA [None]
  - INTERMITTENT CLAUDICATION [None]
  - MYOCARDIAL INFARCTION [None]
  - PALPITATIONS [None]
  - PRESCRIBED OVERDOSE [None]
